FAERS Safety Report 17085289 (Version 2)
Quarter: 2019Q4

REPORT INFORMATION
  Report Type: Spontaneous
  Country: TR (occurrence: TR)
  Receive Date: 20191128
  Receipt Date: 20191212
  Transmission Date: 20200122
  Serious: Yes (Hospitalization, Other)
  Sender: FDA-Public Use
  Company Number: TR-ABBVIE-19K-161-3000227-00

PATIENT
  Age: 25 Year
  Sex: Male
  Weight: 55 kg

DRUGS (1)
  1. HUMIRA [Suspect]
     Active Substance: ADALIMUMAB
     Indication: CROHN^S DISEASE
     Route: 058
     Dates: start: 2018, end: 20191115

REACTIONS (2)
  - Candida infection [Recovering/Resolving]
  - Abdominal abscess [Recovering/Resolving]

NARRATIVE: CASE EVENT DATE: 20191028
